FAERS Safety Report 17169215 (Version 1)
Quarter: 2019Q4

REPORT INFORMATION
  Report Type: Spontaneous
  Country: US (occurrence: US)
  Receive Date: 20191125
  Receipt Date: 20191125
  Transmission Date: 20200122
  Serious: No
  Sender: FDA-Public Use
  Company Number: None

PATIENT
  Sex: Male
  Weight: 77.11 kg

DRUGS (1)
  1. BRILINTA [Suspect]
     Active Substance: TICAGRELOR
     Indication: PROPHYLAXIS
     Dates: start: 201808, end: 20190808

REACTIONS (11)
  - Impaired healing [None]
  - Chronic kidney disease [None]
  - Dehydration [None]
  - Cardiac pacemaker insertion [None]
  - Anaemia [None]
  - Atrioventricular block [None]
  - Oesophageal ulcer [None]
  - Limb injury [None]
  - Gastric disorder [None]
  - Asthenia [None]
  - Blood pressure increased [None]
